FAERS Safety Report 24776438 (Version 2)
Quarter: 2025Q1

REPORT INFORMATION
  Report Type: Report from Study
  Country: CA (occurrence: CA)
  Receive Date: 20241226
  Receipt Date: 20250123
  Transmission Date: 20250408
  Serious: Yes (Hospitalization, Other)
  Sender: SANDOZ
  Company Number: CA-002147023-NVSC2020CA326145

PATIENT
  Sex: Male

DRUGS (6)
  1. ERELZI [Suspect]
     Active Substance: ETANERCEPT-SZZS
     Indication: Rheumatoid arthritis
     Dosage: 50 MG, QW
     Route: 058
     Dates: start: 20200826
  2. HYDROXYCHLOROQUINE [Concomitant]
     Active Substance: HYDROXYCHLOROQUINE
     Indication: Product used for unknown indication
     Dosage: UNK, QD
     Route: 048
     Dates: start: 201606
  3. METHOTREXATE [Concomitant]
     Active Substance: METHOTREXATE
     Indication: Product used for unknown indication
     Dosage: UNK, QW
     Route: 065
     Dates: start: 201505, end: 201609
  4. PANTOPRAZOLE [Concomitant]
     Active Substance: PANTOPRAZOLE
     Indication: Product used for unknown indication
     Route: 065
  5. PLAQUENIL [Concomitant]
     Active Substance: HYDROXYCHLOROQUINE SULFATE
     Indication: Product used for unknown indication
     Dosage: UNK, QD
     Route: 048
     Dates: start: 201606
  6. SULFASALAZINE [Concomitant]
     Active Substance: SULFASALAZINE
     Indication: Product used for unknown indication
     Dosage: UNK, BID
     Route: 048
     Dates: start: 202002

REACTIONS (13)
  - Cerebrovascular accident [Unknown]
  - Neoplasm malignant [Unknown]
  - Hospitalisation [Unknown]
  - Colon cancer [Unknown]
  - Pain in extremity [Unknown]
  - Burning sensation [Unknown]
  - General physical health deterioration [Unknown]
  - Mobility decreased [Unknown]
  - Speech disorder [Unknown]
  - Arthralgia [Unknown]
  - Balance disorder [Unknown]
  - Headache [Unknown]
  - Drug ineffective [Unknown]
